FAERS Safety Report 11829906 (Version 1)
Quarter: 2015Q4

REPORT INFORMATION
  Report Type: Spontaneous
  Country: IT (occurrence: IT)
  Receive Date: 20151212
  Receipt Date: 20151212
  Transmission Date: 20160305
  Serious: Yes (Other)
  Sender: FDA-Public Use
  Company Number: IT-ASTRAZENECA-2015SF23187

PATIENT
  Age: 24628 Day
  Sex: Male
  Weight: 116 kg

DRUGS (5)
  1. BYDUREON [Suspect]
     Active Substance: EXENATIDE
     Route: 058
     Dates: start: 20150310, end: 20151113
  2. SIMVASTATIN. [Concomitant]
     Active Substance: SIMVASTATIN
     Dosage: 20 MG FILM COATED TABLET
  3. DIAMICRON [Concomitant]
     Active Substance: GLICLAZIDE
     Dosage: 60 MG MODIFIED RELEASE TABLET
  4. CARDIRENE (ASA) [Concomitant]
     Active Substance: ASPIRIN DL-LYSINE
     Dosage: 75 MG POWDER FOR ORAL SOLUTION
  5. METFORMIN [Concomitant]
     Active Substance: METFORMIN HYDROCHLORIDE
     Dosage: 1000 MG FILM COATED TABLETS

REACTIONS (2)
  - Lipodystrophy acquired [Recovered/Resolved with Sequelae]
  - Injection site reaction [Unknown]

NARRATIVE: CASE EVENT DATE: 20151113
